FAERS Safety Report 7740767-8 (Version None)
Quarter: 2011Q3

REPORT INFORMATION
  Report Type: 
  Country: None (occurrence: None)
  Receive Date: 20110909
  Receipt Date: 20110825
  Transmission Date: 20111222
  Serious: Yes (Hospitalization)
  Sender: FDA-Public Use
  Company Number: US-GLAXOSMITHKLINE-R0017529A

PATIENT
  Age: 82 Year
  Sex: Female
  Weight: 73.18 kg

DRUGS (5)
  1. AMLODIPINE BESYLATE [Suspect]
     Indication: HYPERTENSION
     Dosage: 5MG PER DAY
     Route: 048
     Dates: start: 20100301
  2. POTASSIUM GLUCONATE TAB [Concomitant]
     Indication: MEDICAL DIET
     Route: 048
     Dates: start: 20090101
  3. HYZAAR [Concomitant]
     Indication: HYPERTENSION
     Dosage: 50MG PER DAY
     Route: 048
     Dates: start: 20050101
  4. BLINDED VACCINE [Suspect]
     Route: 030
     Dates: start: 20110318, end: 20110318
  5. MAXZIDE [Suspect]
     Indication: HYPERTENSION
     Dosage: 37.5MG PER DAY
     Route: 048
     Dates: start: 20050101

REACTIONS (1)
  - DYSPNOEA [None]
